FAERS Safety Report 14556251 (Version 1)
Quarter: 2018Q1

REPORT INFORMATION
  Report Type: Spontaneous
  Country: IL (occurrence: IL)
  Receive Date: 20180221
  Receipt Date: 20180221
  Transmission Date: 20180509
  Serious: No
  Sender: FDA-Public Use
  Company Number: IL-009507513-1802ISR007977

PATIENT
  Sex: Male

DRUGS (2)
  1. VITAMINS (UNSPECIFIED) [Suspect]
     Active Substance: VITAMINS
     Dosage: UNK
     Route: 048
  2. ELOCOM [Suspect]
     Active Substance: MOMETASONE FUROATE
     Dosage: UNK
     Route: 048

REACTIONS (3)
  - Incorrect route of drug administration [Unknown]
  - Wrong drug administered [Unknown]
  - Product appearance confusion [Unknown]
